FAERS Safety Report 6428556-8 (Version None)
Quarter: 2009Q4

REPORT INFORMATION
  Report Type: 
  Country: None (occurrence: None)
  Receive Date: 20091103
  Receipt Date: 20091027
  Transmission Date: 20100525
  Serious: Yes (Death, Hospitalization)
  Sender: FDA-Public Use
  Company Number: 2007US002553

PATIENT
  Age: 60 Year
  Sex: Male
  Weight: 60 kg

DRUGS (25)
  1. PROTOPIC [Suspect]
     Indication: DERMATITIS
     Dosage: 0.1 %, BID, TOPICAL. 0.1% UID/QD, TOPICAL
     Route: 061
     Dates: start: 20030701, end: 20040101
  2. MS CONTIN [Concomitant]
  3. SENOKOT (SENNOSIDE B) [Concomitant]
  4. NAPROXEN [Concomitant]
  5. PREVACID [Concomitant]
  6. SULFADIAZINE [Concomitant]
  7. POLYSPORIN OINTMENT [Concomitant]
  8. COLACE (DOCUSATE SODIUM) [Concomitant]
  9. VANCOMYCIN [Concomitant]
  10. PREDNISONE TAB [Concomitant]
  11. MS CONTIN [Concomitant]
  12. PHENYTOIN [Concomitant]
  13. HEPARIN [Concomitant]
  14. NIFEDIPINE [Concomitant]
  15. XANAX [Concomitant]
  16. PHENERGAN (PROMETHAZINE) [Concomitant]
  17. BACTRIM [Concomitant]
  18. LOVENOX [Concomitant]
  19. TRIAMCINOLONE [Concomitant]
  20. AUGMENTIN (CLAVULANIC ACID) [Concomitant]
  21. RISPERIDONE [Concomitant]
  22. COMPAZINE (PROCHLORPERAZINE MALEATE) [Concomitant]
  23. LORAZEPAM [Concomitant]
  24. OXYCODONE HCL [Concomitant]
  25. RANITIDINE [Concomitant]

REACTIONS (20)
  - DEHYDRATION [None]
  - EOSINOPHILIA [None]
  - FATIGUE [None]
  - HYPERHIDROSIS [None]
  - HYPOPHAGIA [None]
  - LEUKAEMIA CUTIS [None]
  - LEUKOCYTOSIS [None]
  - LYMPHADENOPATHY [None]
  - LYMPHOMA CUTIS [None]
  - LYMPHOPENIA [None]
  - MUSCLE ATROPHY [None]
  - MYCOSIS FUNGOIDES [None]
  - NAUSEA [None]
  - NEUTROPHILIA [None]
  - PYODERMA [None]
  - SKIN ULCER [None]
  - SUPERINFECTION [None]
  - THROMBOCYTOSIS [None]
  - VOMITING [None]
  - WEIGHT DECREASED [None]
